FAERS Safety Report 16041571 (Version 1)
Quarter: 2019Q1

REPORT INFORMATION
  Report Type: Spontaneous
  Country: US (occurrence: US)
  Receive Date: 20190306
  Receipt Date: 20190306
  Transmission Date: 20190418
  Serious: No
  Sender: FDA-Public Use
  Company Number: US-PFIZER INC-2016533380

PATIENT
  Age: 45 Year
  Sex: Male
  Weight: 108.8 kg

DRUGS (5)
  1. SOMAVERT [Suspect]
     Active Substance: PEGVISOMANT
     Indication: ACQUIRED GROWTH HORMONE RESISTANCE
     Dosage: 40 MG, 1X/DAY (7 DAYS A WEEK)
     Dates: start: 2004
  2. SOMAVERT [Suspect]
     Active Substance: PEGVISOMANT
     Indication: GIGANTISM
     Dosage: 30 MG, DAILY
     Route: 058
     Dates: start: 2005
  3. SOMAVERT [Suspect]
     Active Substance: PEGVISOMANT
     Indication: PITUITARY TUMOUR
  4. SOMATULINE [Concomitant]
     Active Substance: LANREOTIDE ACETATE
     Indication: ACQUIRED GROWTH HORMONE RESISTANCE
     Dosage: 20 MG, UNK
     Dates: start: 2004
  5. SOMAVERT [Suspect]
     Active Substance: PEGVISOMANT
     Indication: ACROMEGALY
     Dosage: 40 MG, DAILY
     Route: 058
     Dates: start: 2005

REACTIONS (3)
  - Arthralgia [Unknown]
  - Product use issue [Unknown]
  - Product dose omission [Unknown]

NARRATIVE: CASE EVENT DATE: 2004
